FAERS Safety Report 15255186 (Version 1)
Quarter: 2018Q4

REPORT INFORMATION
  Report Type: Spontaneous
  Country: US (occurrence: US)
  Receive Date: 20180808
  Receipt Date: 20180808
  Transmission Date: 20190204
  Serious: Yes (Other)
  Sender: FDA-Public Use
  Company Number: US-SA-2018SA182095

PATIENT
  Age: 63 Year
  Sex: Female

DRUGS (13)
  1. SPIRIVA [Suspect]
     Active Substance: TIOTROPIUM BROMIDE MONOHYDRATE
     Indication: PRODUCT USED FOR UNKNOWN INDICATION
     Dosage: UNK UNK, UNK
     Route: 065
  2. VENTAVIS [Concomitant]
     Active Substance: ILOPROST
  3. MELATONIN [Suspect]
     Active Substance: MELATONIN
     Indication: PRODUCT USED FOR UNKNOWN INDICATION
     Dosage: UNK UNK, UNK
     Route: 065
  4. REVATIO [Concomitant]
     Active Substance: SILDENAFIL CITRATE
  5. NEFAZODONE [Concomitant]
     Active Substance: NEFAZODONE
  6. ALBUTEROL [SALBUTAMOL] [Suspect]
     Active Substance: ALBUTEROL
     Indication: PRODUCT USED FOR UNKNOWN INDICATION
  7. OXYCODONE [Concomitant]
     Active Substance: OXYCODONE
  8. AMBIEN [Suspect]
     Active Substance: ZOLPIDEM TARTRATE
     Indication: PRODUCT USED FOR UNKNOWN INDICATION
     Dosage: UNK UNK, UNK
     Route: 065
  9. OXYGEN. [Concomitant]
     Active Substance: OXYGEN
  10. XANAX [Concomitant]
     Active Substance: ALPRAZOLAM
  11. LASIX [Concomitant]
     Active Substance: FUROSEMIDE
  12. AMBRISENTAN [Suspect]
     Active Substance: AMBRISENTAN
     Indication: PULMONARY HYPERTENSION
     Dosage: 5 MG, QD
     Route: 048
     Dates: start: 20090824
  13. ZANTAC [Concomitant]
     Active Substance: RANITIDINE HYDROCHLORIDE

REACTIONS (64)
  - Terminal state [Unknown]
  - Cardiac disorder [Unknown]
  - Gait disturbance [Unknown]
  - Feeling abnormal [Unknown]
  - Insomnia [Unknown]
  - Mass [Unknown]
  - Weight decreased [Unknown]
  - Dehydration [Unknown]
  - Vitamin B complex deficiency [Unknown]
  - Memory impairment [Unknown]
  - Pyrexia [Unknown]
  - Abdominal discomfort [Unknown]
  - Fatigue [Unknown]
  - Hot flush [Unknown]
  - Dizziness [Unknown]
  - Diarrhoea [Unknown]
  - Rotator cuff syndrome [Unknown]
  - Pulmonary mass [Unknown]
  - Decreased appetite [Unknown]
  - Influenza [Unknown]
  - Feeling cold [Unknown]
  - Palpitations [Unknown]
  - Fluid retention [Unknown]
  - Somnolence [Unknown]
  - Menopause [Unknown]
  - Brain natriuretic peptide abnormal [Unknown]
  - Ill-defined disorder [Unknown]
  - Confusional state [Unknown]
  - Iron deficiency anaemia [Unknown]
  - Bedridden [Unknown]
  - Influenza like illness [Unknown]
  - Vocal cord paralysis [Unknown]
  - Chest pain [Unknown]
  - Peripheral swelling [Unknown]
  - Brain natriuretic peptide increased [Unknown]
  - Lung operation [Unknown]
  - Unevaluable event [Unknown]
  - Lactose intolerance [Unknown]
  - Dyspnoea [Unknown]
  - Headache [Unknown]
  - Nasal congestion [Unknown]
  - Vomiting [Unknown]
  - Gastroenteritis viral [Unknown]
  - Abdominal pain upper [Unknown]
  - Fibromyalgia [Unknown]
  - Walking disability [Unknown]
  - Eye contusion [Unknown]
  - Intracardiac mass [Unknown]
  - Vitamin D decreased [Unknown]
  - Malaise [Unknown]
  - Joint swelling [Unknown]
  - Paraesthesia [Unknown]
  - Dysarthria [Unknown]
  - Product dose omission [Unknown]
  - Pneumonia [Unknown]
  - Glaucoma [Unknown]
  - Cardiac failure congestive [Unknown]
  - Feeding disorder [Unknown]
  - Pain [Unknown]
  - Bone marrow disorder [Unknown]
  - Thirst [Unknown]
  - Intervertebral disc protrusion [Unknown]
  - Anxiety [Unknown]
  - Fall [Unknown]
